FAERS Safety Report 15426767 (Version 1)
Quarter: 2018Q3

REPORT INFORMATION
  Report Type: Report from Study
  Country: CO (occurrence: CO)
  Receive Date: 20180925
  Receipt Date: 20180925
  Transmission Date: 20181010
  Serious: Yes (Other)
  Sender: FDA-Public Use
  Company Number: CO-INCYTE CORPORATION-2018IN009742

PATIENT

DRUGS (1)
  1. JAKAVI [Suspect]
     Active Substance: RUXOLITINIB
     Indication: POLYCYTHAEMIA VERA
     Dosage: 30 MG, QD
     Route: 048
     Dates: start: 2016

REACTIONS (9)
  - Dizziness [Unknown]
  - Haematoma [Unknown]
  - Movement disorder [Unknown]
  - Eye injury [Unknown]
  - Epistaxis [Unknown]
  - Discomfort [Unknown]
  - Thrombosis [Unknown]
  - Fall [Unknown]
  - Feeling abnormal [Unknown]

NARRATIVE: CASE EVENT DATE: 20180906
